FAERS Safety Report 4319355-1 (Version None)
Quarter: 2004Q1

REPORT INFORMATION
  Report Type: 
  Country: None (occurrence: None)
  Receive Date: 20040319
  Receipt Date: 20020916
  Transmission Date: 20041129
  Serious: Yes (Hospitalization)
  Sender: FDA-Public Use
  Company Number: PHFR2002GB03056

PATIENT
  Age: 47 Year
  Sex: Male

DRUGS (6)
  1. CLOZARIL [Suspect]
     Indication: SCHIZOPHRENIA
     Dosage: 400 MG/DAY
     Route: 048
     Dates: start: 20020816, end: 20020920
  2. CARBAMAZEPINE [Suspect]
     Indication: AFFECTIVE DISORDER
     Dosage: 500MG/DAY
     Route: 048
     Dates: start: 20020722, end: 20020910
  3. HALOPERIDOL [Concomitant]
     Indication: SCHIZOPHRENIA
     Dosage: 15 MG, BID
     Route: 048
     Dates: start: 20020610
  4. MODECATE ^SQUIBB^ [Concomitant]
     Dosage: 50MG/DAY
     Route: 030
     Dates: start: 20020610, end: 20020704
  5. MODECATE ^SQUIBB^ [Concomitant]
     Dosage: 50 MG, QW
     Route: 030
     Dates: start: 20020610, end: 20020704
  6. DEPIXOL [Concomitant]
     Dosage: 500 MG, QW
     Route: 030
     Dates: start: 20020704, end: 20020801

REACTIONS (19)
  - ANOREXIA [None]
  - CHOLANGITIS [None]
  - CHOLELITHIASIS [None]
  - CHROMATURIA [None]
  - DIARRHOEA [None]
  - DRY SKIN [None]
  - DYSPHAGIA [None]
  - FATIGUE [None]
  - HEPATITIS [None]
  - JAUNDICE [None]
  - LEUKOPENIA [None]
  - LIVER FUNCTION TEST ABNORMAL [None]
  - NAUSEA [None]
  - NEUTROPENIA [None]
  - PYREXIA [None]
  - RASH MACULO-PAPULAR [None]
  - RASH PRURITIC [None]
  - SKIN DESQUAMATION [None]
  - TACHYCARDIA [None]
